FAERS Safety Report 4662085-7 (Version None)
Quarter: 2005Q2

REPORT INFORMATION
  Report Type: 
  Country: None (occurrence: None)
  Receive Date: 20050512
  Receipt Date: 20050503
  Transmission Date: 20051028
  Serious: Yes (Hospitalization, Other)
  Sender: FDA-Public Use
  Company Number: A-US2004-05283

PATIENT
  Age: 61 Year
  Sex: Female
  Weight: 61.7 kg

DRUGS (23)
  1. TRACLEER [Suspect]
     Indication: PULMONARY HYPERTENSION
     Dosage: 125 MG, BID, ORAL
     Route: 048
     Dates: start: 20030101, end: 20040201
  2. TYLENOL [Suspect]
  3. FEOSOL (FERROUS SULFATE) [Concomitant]
  4. VITAMIN B12 [Concomitant]
  5. KLOR-CON [Concomitant]
  6. ASPIRIN [Concomitant]
  7. BUTALBITAL [Concomitant]
  8. ATENOLOL [Concomitant]
  9. ACTONEL [Concomitant]
  10. CELEBREX [Concomitant]
  11. LIPITOR [Concomitant]
  12. FUROSEMIDE [Concomitant]
  13. COUMADIN [Concomitant]
  14. ACETAMINOPHEN W/PSEUDOEPHEDRINE (PARACETAMOL, PSEUDOEPHEDRINE) [Concomitant]
  15. GUAIFENESIN (GUIAFENESIN) [Concomitant]
  16. IMITREX [Concomitant]
  17. COMBIVENT [Concomitant]
  18. ADVAIR DISKUS 100/50 [Concomitant]
  19. LISINOPRIL [Concomitant]
  20. TEGRETAL-SLOW RELEASE (CARBAMAZEPINE) [Concomitant]
  21. FLUMADINE [Concomitant]
  22. CLARINEX [Concomitant]
  23. OXYGEN (OXYGEN) [Concomitant]

REACTIONS (5)
  - BILIARY DILATATION [None]
  - CRYSTAL ARTHROPATHY [None]
  - HEPATITIS ACUTE [None]
  - INJURY [None]
  - ODDI'S SPHINCTER CONSTRICTION [None]
